FAERS Safety Report 13881828 (Version 2)
Quarter: 2017Q4

REPORT INFORMATION
  Report Type: Report from Study
  Country: US (occurrence: US)
  Receive Date: 20170818
  Receipt Date: 20171003
  Transmission Date: 20180320
  Serious: No
  Sender: FDA-Public Use
  Company Number: US-AMGEN-USASL2017123563

PATIENT
  Age: 62 Year
  Sex: Female

DRUGS (1)
  1. ENBREL [Suspect]
     Active Substance: ETANERCEPT
     Indication: RHEUMATOID ARTHRITIS
     Dosage: 50 MG, QWK
     Route: 058
     Dates: start: 20170629

REACTIONS (7)
  - Constipation [Not Recovered/Not Resolved]
  - Injection site rash [Recovered/Resolved]
  - Therapy non-responder [Unknown]
  - Respiratory tract congestion [Not Recovered/Not Resolved]
  - Injection site swelling [Recovered/Resolved]
  - Productive cough [Unknown]
  - Dyspnoea [Unknown]

NARRATIVE: CASE EVENT DATE: 2017
